FAERS Safety Report 5221513-9 (Version None)
Quarter: 2007Q1

REPORT INFORMATION
  Report Type: 
  Country: None (occurrence: None)
  Receive Date: 20070126
  Receipt Date: 20070119
  Transmission Date: 20070707
  Serious: Yes (Other)
  Sender: FDA-Public Use
  Company Number: US-PFIZER INC-2007005608

PATIENT
  Sex: Female
  Weight: 120.7 kg

DRUGS (3)
  1. LIPITOR [Suspect]
     Indication: BLOOD CHOLESTEROL INCREASED
  2. PAXIL [Concomitant]
  3. NEXIUM [Concomitant]

REACTIONS (3)
  - HIP ARTHROPLASTY [None]
  - RESTLESS LEGS SYNDROME [None]
  - TREMOR [None]
